FAERS Safety Report 5333197-X (Version None)
Quarter: 2007Q1

REPORT INFORMATION
  Report Type: 
  Country: None (occurrence: None)
  Receive Date: 20070306
  Receipt Date: 20061113
  Transmission Date: 20070707
  Serious: Yes (Other)
  Sender: FDA-Public Use
  Company Number: A03200606830

PATIENT
  Sex: Female
  Weight: 52.15 kg

DRUGS (5)
  1. PLAVIX [Suspect]
     Dosage: 75 MG QD - ORAL
     Route: 048
  2. DIGOXIN [Concomitant]
  3. PRAVASTATIN [Concomitant]
  4. METOPROLOL SUCCINATE [Concomitant]
  5. ACETYLSALICYLIC ACID SRT [Concomitant]

REACTIONS (1)
  - HALLUCINATION [None]
